FAERS Safety Report 16550160 (Version 1)
Quarter: 2019Q3

REPORT INFORMATION
  Report Type: Spontaneous
  Country: US (occurrence: US)
  Receive Date: 20190709
  Receipt Date: 20190709
  Transmission Date: 20191004
  Serious: Yes (Other)
  Sender: FDA-Public Use
  Company Number: None

PATIENT
  Age: 42 Year
  Sex: Male
  Weight: 101.25 kg

DRUGS (1)
  1. ROBO COUGH [Suspect]
     Active Substance: DEXTROMETHORPHAN HYDROBROMIDE
     Indication: FEELING OF RELAXATION
     Dosage: ?          QUANTITY:15 TEASPOON(S);?
     Route: 048
     Dates: start: 20190701, end: 20190707

REACTIONS (4)
  - Mouth swelling [None]
  - Hypoaesthesia oral [None]
  - Hyperhidrosis [None]
  - Oral discomfort [None]

NARRATIVE: CASE EVENT DATE: 20190707
